FAERS Safety Report 24553470 (Version 1)
Quarter: 2024Q4

REPORT INFORMATION
  Report Type: Report from Study
  Country: US (occurrence: US)
  Receive Date: 20241028
  Receipt Date: 20241028
  Transmission Date: 20250114
  Serious: No
  Sender: ROCHE
  Company Number: US-ROCHE-3395398

PATIENT
  Sex: Male
  Weight: 37.8 kg

DRUGS (8)
  1. NUTROPIN AQ [Suspect]
     Active Substance: SOMATROPIN
     Indication: Short stature
     Route: 058
     Dates: start: 20180301
  2. NUTROPIN AQ [Suspect]
     Active Substance: SOMATROPIN
     Indication: Silver-Russell syndrome
  3. NUTROPIN AQ [Suspect]
     Active Substance: SOMATROPIN
     Indication: Growth hormone deficiency
  4. VITAMIN C [Concomitant]
     Active Substance: ASCORBIC ACID
  5. NORCO [Concomitant]
     Active Substance: ACETAMINOPHEN\HYDROCODONE BITARTRATE
  6. NAPROXEN [Concomitant]
     Active Substance: NAPROXEN
  7. OXYCODONE [Concomitant]
     Active Substance: OXYCODONE
  8. ERGOCALCIFEROL [Concomitant]
     Active Substance: ERGOCALCIFEROL

REACTIONS (4)
  - Bone pain [Unknown]
  - Headache [Unknown]
  - Constipation [Unknown]
  - Urinary hesitation [Unknown]

NARRATIVE: CASE EVENT DATE: 20200514
